FAERS Safety Report 8576500-X (Version None)
Quarter: 2012Q3

REPORT INFORMATION
  Report Type: 
  Country: None (occurrence: None)
  Receive Date: 20120807
  Receipt Date: 20120725
  Transmission Date: 20120928
  Serious: No
  Sender: FDA-Public Use
  Company Number: US-JNJFOC-20120713235

PATIENT
  Sex: Female
  Weight: 86.18 kg

DRUGS (8)
  1. INSULIN [Concomitant]
     Indication: DIABETES MELLITUS
     Dosage: ^SLIDING SCALE^
     Route: 058
  2. FENTANYL CITRATE [Suspect]
     Indication: BACK PAIN
     Route: 062
     Dates: start: 20120701, end: 20120725
  3. LITHIUM CARBONATE [Concomitant]
     Indication: BIPOLAR DISORDER
     Route: 048
  4. DURAGESIC-100 [Suspect]
     Indication: BACK PAIN
     Route: 062
     Dates: start: 20120725
  5. SAPHRIS [Concomitant]
     Indication: BIPOLAR DISORDER
     Route: 048
  6. DURAGESIC-100 [Suspect]
     Route: 062
     Dates: end: 20120701
  7. DURAGESIC-100 [Suspect]
     Route: 062
     Dates: start: 20120701, end: 20120701
  8. CLONAZEPAM [Concomitant]
     Indication: BIPOLAR DISORDER
     Route: 048

REACTIONS (3)
  - DRUG INEFFECTIVE [None]
  - WRONG TECHNIQUE IN DRUG USAGE PROCESS [None]
  - PRODUCT QUALITY ISSUE [None]
